FAERS Safety Report 17994611 (Version 1)
Quarter: 2020Q3

REPORT INFORMATION
  Report Type: Spontaneous
  Country: US (occurrence: US)
  Receive Date: 20200708
  Receipt Date: 20200708
  Transmission Date: 20201103
  Serious: Yes (Other)
  Sender: FDA-Public Use
  Company Number: None

PATIENT
  Age: 62 Year
  Weight: 101.25 kg

DRUGS (7)
  1. VITAMIN D3 [Concomitant]
     Active Substance: CHOLECALCIFEROL
  2. DUTASTERIDE 0.5MG [Concomitant]
     Active Substance: DUTASTERIDE
  3. ZINC. [Concomitant]
     Active Substance: ZINC
  4. LIVALO [Suspect]
     Active Substance: PITAVASTATIN CALCIUM
     Indication: BLOOD CHOLESTEROL INCREASED
     Route: 048
     Dates: start: 20200115, end: 20200529
  5. ZYRTEC [Concomitant]
     Active Substance: CETIRIZINE HYDROCHLORIDE
  6. ALFUZOSIN 10MG [Concomitant]
     Active Substance: ALFUZOSIN
  7. FAMOTIDINE 20MG [Concomitant]
     Active Substance: FAMOTIDINE

REACTIONS (4)
  - Blood creatine phosphokinase increased [None]
  - Muscular weakness [None]
  - Pain [None]
  - Muscle spasms [None]

NARRATIVE: CASE EVENT DATE: 20200603
